FAERS Safety Report 16036005 (Version 1)
Quarter: 2019Q1

REPORT INFORMATION
  Report Type: Other
  Country: CH (occurrence: CH)
  Receive Date: 20190305
  Receipt Date: 20190305
  Transmission Date: 20190418
  Serious: Yes (Hospitalization, Other)
  Sender: FDA-Public Use
  Company Number: CH-COLLEGIUM PHARMACEUTICAL, INC.-CH-2019COL000286

PATIENT
  Age: 93 Year
  Sex: Female
  Weight: 52.6 kg

DRUGS (10)
  1. TAPENTADOL EXTENDED RELEASE [Suspect]
     Active Substance: TAPENTADOL
     Dosage: 50 MG, QD
     Route: 048
     Dates: start: 20190109, end: 20190115
  2. TAPENTADOL EXTENDED RELEASE [Suspect]
     Active Substance: TAPENTADOL
     Indication: PAIN
     Dosage: 25 MG, BID
     Route: 048
     Dates: start: 20190101, end: 20190108
  3. TAPENTADOL EXTENDED RELEASE [Suspect]
     Active Substance: TAPENTADOL
     Indication: PAIN
     Dosage: 50 MG, QD
     Route: 048
     Dates: start: 20190109, end: 20190115
  4. XARELTO [Concomitant]
     Active Substance: RIVAROXABAN
     Indication: PRODUCT USED FOR UNKNOWN INDICATION
     Dosage: UNK
  5. TORASEMID SANDOZ ECO [Concomitant]
     Active Substance: TORSEMIDE
     Indication: PRODUCT USED FOR UNKNOWN INDICATION
     Dosage: UNK
  6. TAPENTADOL EXTENDED RELEASE [Suspect]
     Active Substance: TAPENTADOL
     Dosage: 25 MG, QD
     Route: 048
     Dates: start: 20190109, end: 20190115
  7. BELOC ZOK [Concomitant]
     Active Substance: METOPROLOL SUCCINATE
     Indication: PRODUCT USED FOR UNKNOWN INDICATION
     Dosage: UNK
  8. PREDNISON STREULI [Concomitant]
     Active Substance: PREDNISONE
     Indication: POLYARTHRITIS
     Dosage: UNK
  9. DAONIL [Concomitant]
     Active Substance: GLYBURIDE
     Indication: PRODUCT USED FOR UNKNOWN INDICATION
     Dosage: UNK
  10. DIGOXIN. [Concomitant]
     Active Substance: DIGOXIN
     Indication: PRODUCT USED FOR UNKNOWN INDICATION
     Dosage: UNK

REACTIONS (1)
  - Delirium [Recovered/Resolved]

NARRATIVE: CASE EVENT DATE: 20190110
